FAERS Safety Report 5585527-1 (Version None)
Quarter: 2008Q1

REPORT INFORMATION
  Report Type: 
  Country: None (occurrence: None)
  Receive Date: 20080109
  Receipt Date: 20080103
  Transmission Date: 20080703
  Serious: Yes (Other)
  Sender: FDA-Public Use
  Company Number: B0359623A

PATIENT
  Sex: Male

DRUGS (5)
  1. SEROXAT [Suspect]
     Route: 065
     Dates: start: 19980703
  2. DOTHIEPIN HYDROCHLORIDE [Concomitant]
     Route: 065
  3. DUTONIN [Concomitant]
     Route: 065
  4. LORAZEPAM [Concomitant]
     Route: 065
     Dates: start: 19980724
  5. EFFEXOR [Concomitant]
     Dates: start: 20010926

REACTIONS (12)
  - AGGRESSION [None]
  - ANXIETY [None]
  - DIZZINESS [None]
  - ERECTILE DYSFUNCTION [None]
  - FEELING ABNORMAL [None]
  - HYPERHIDROSIS [None]
  - INFLUENZA LIKE ILLNESS [None]
  - NIGHTMARE [None]
  - PARAESTHESIA [None]
  - SUICIDAL IDEATION [None]
  - TREMOR [None]
  - WITHDRAWAL SYNDROME [None]
